FAERS Safety Report 24468451 (Version 2)
Quarter: 2024Q4

REPORT INFORMATION
  Report Type: Spontaneous
  Country: JP (occurrence: JP)
  Receive Date: 20241018
  Receipt Date: 20241219
  Transmission Date: 20250115
  Serious: Yes (Other)
  Sender: ALEXION PHARMACEUTICALS
  Company Number: JP-ASTRAZENECA-240038926_013120_P_1

PATIENT
  Age: 72 Year

DRUGS (8)
  1. IMFINZI [Suspect]
     Active Substance: DURVALUMAB
     Indication: Hepatocellular carcinoma
     Dosage: 1500 MILLIGRAM, UNK, FREQUENCY: Q4WK
  2. IMFINZI [Suspect]
     Active Substance: DURVALUMAB
     Dosage: 1500 MILLIGRAM, UNK, FREQUENCY: Q4WK
     Route: 041
  3. IMFINZI [Suspect]
     Active Substance: DURVALUMAB
     Dosage: 1500 MILLIGRAM, UNK, FREQUENCY: Q4WK
  4. IMFINZI [Suspect]
     Active Substance: DURVALUMAB
     Dosage: 1500 MILLIGRAM, UNK, FREQUENCY: Q4WK
     Route: 041
  5. IMJUDO [Suspect]
     Active Substance: TREMELIMUMAB\TREMELIMUMAB-ACTL
     Indication: Hepatocellular carcinoma
     Dosage: 300 MILLIGRAM, UNK, FREQUENCY: UNK
  6. IMJUDO [Suspect]
     Active Substance: TREMELIMUMAB\TREMELIMUMAB-ACTL
     Dosage: 300 MILLIGRAM, UNK, FREQUENCY: UNK
     Route: 041
  7. IMJUDO [Suspect]
     Active Substance: TREMELIMUMAB\TREMELIMUMAB-ACTL
     Dosage: 300 MILLIGRAM, UNK, FREQUENCY: UNK
  8. IMJUDO [Suspect]
     Active Substance: TREMELIMUMAB\TREMELIMUMAB-ACTL
     Dosage: 300 MILLIGRAM, UNK, FREQUENCY: UNK
     Route: 041

REACTIONS (2)
  - Immune-mediated hepatic disorder [Recovering/Resolving]
  - Thyroid disorder [Recovering/Resolving]
